FAERS Safety Report 5778556-6 (Version None)
Quarter: 2008Q2

REPORT INFORMATION
  Report Type: 
  Country: None (occurrence: None)
  Receive Date: 20080619
  Receipt Date: 20080612
  Transmission Date: 20081010
  Serious: Yes (Other)
  Sender: FDA-Public Use
  Company Number: CH-NOVOPROD-275405

PATIENT
  Age: 42 Year
  Sex: Female

DRUGS (3)
  1. NOVOSEVEN [Suspect]
     Indication: HAEMORRHAGE
     Dosage: 2.4 MG, SINGLE
     Route: 042
     Dates: start: 20070915, end: 20070915
  2. HEXOPRENALINE [Concomitant]
  3. BETAMETHASONE [Concomitant]

REACTIONS (1)
  - PREMATURE BABY [None]
